FAERS Safety Report 7385772-9 (Version None)
Quarter: 2011Q1

REPORT INFORMATION
  Report Type: 
  Country: None (occurrence: None)
  Receive Date: 20110331
  Receipt Date: 20101005
  Transmission Date: 20110831
  Serious: Yes (Other)
  Sender: FDA-Public Use
  Company Number: US-BAYER-201024853NA

PATIENT
  Sex: Female
  Weight: 90.703 kg

DRUGS (11)
  1. PROTONIX [Concomitant]
     Dosage: UNK
     Dates: start: 20060601
  2. DOSTINEX [Concomitant]
     Indication: PITUITARY TUMOUR BENIGN
  3. DILANTIN [Concomitant]
     Dosage: UNK
     Dates: start: 20060501
  4. HYDROCODONE [HYDROCODONE] [Concomitant]
     Indication: HEADACHE
     Dosage: UNK UNK, PRN
  5. AMBIEN [Concomitant]
     Indication: SLEEP DISORDER
     Dosage: 10 MG, PRN
  6. CALTRATE [CALCIUM CARBONATE] [Concomitant]
     Dosage: UNK
     Dates: start: 20060601
  7. COUMADIN [Concomitant]
     Dosage: 4 MG, QD
     Dates: start: 20060601
  8. YASMIN [Suspect]
     Indication: PRODUCT USED FOR UNKNOWN INDICATION
     Dosage: UNK UNK, QD
     Route: 048
     Dates: start: 20051101, end: 20060512
  9. MULTIVITAMIN [Concomitant]
  10. UNCODEABLE ^UNCLASSIFIABLE^ [Concomitant]
     Dosage: UNK
     Dates: start: 20060601
  11. ALLEGRA [Concomitant]

REACTIONS (10)
  - INTRACRANIAL VENOUS SINUS THROMBOSIS [None]
  - MUSCULAR WEAKNESS [None]
  - PERONEAL NERVE PALSY [None]
  - CEREBRAL INFARCTION [None]
  - CEREBROVASCULAR ACCIDENT [None]
  - SPEECH DISORDER [None]
  - DISTURBANCE IN ATTENTION [None]
  - HEMIPLEGIA [None]
  - MENTAL DISORDER [None]
  - INTRACRANIAL HYPOTENSION [None]
